FAERS Safety Report 16249660 (Version 1)
Quarter: 2019Q2

REPORT INFORMATION
  Report Type: Spontaneous
  Country: BR (occurrence: BR)
  Receive Date: 20190429
  Receipt Date: 20190429
  Transmission Date: 20190711
  Serious: Yes (Hospitalization, Other)
  Sender: FDA-Public Use
  Company Number: BR-GLAXOSMITHKLINE-BR2019GSK072530

PATIENT
  Sex: Female

DRUGS (1)
  1. FLIXOTIDE [Suspect]
     Active Substance: FLUTICASONE PROPIONATE
     Indication: PRODUCT USED FOR UNKNOWN INDICATION
     Dosage: 50 UG, UNK, 120 DOSES

REACTIONS (3)
  - Product prescribing error [Unknown]
  - Hospitalisation [Unknown]
  - Product administered to patient of inappropriate age [Unknown]
